FAERS Safety Report 15591627 (Version 4)
Quarter: 2019Q1

REPORT INFORMATION
  Report Type: Report from Study
  Country: JP (occurrence: JP)
  Receive Date: 20181107
  Receipt Date: 20190326
  Transmission Date: 20190417
  Serious: Yes (Other)
  Sender: FDA-Public Use
  Company Number: JP-PFIZER INC-2018447794

PATIENT
  Age: 30 Year
  Sex: Female

DRUGS (1)
  1. XELJANZ [Suspect]
     Active Substance: TOFACITINIB CITRATE
     Indication: COLITIS ULCERATIVE
     Dosage: 20 MG, DAILY
     Route: 048
     Dates: start: 20181005

REACTIONS (3)
  - Haematochezia [Not Recovered/Not Resolved]
  - Paraesthesia [Unknown]
  - Change of bowel habit [Unknown]
